FAERS Safety Report 5238018-1 (Version None)
Quarter: 2007Q1

REPORT INFORMATION
  Report Type: 
  Country: None (occurrence: None)
  Receive Date: 20070214
  Receipt Date: 20070202
  Transmission Date: 20070707
  Serious: Yes (Death)
  Sender: FDA-Public Use
  Company Number: JP-PFIZER INC-2007009550

PATIENT
  Age: 86 Year
  Sex: Male

DRUGS (7)
  1. ZITHROMAC [Suspect]
     Indication: PNEUMONIA
     Dosage: DAILY DOSE:500MG
     Route: 048
     Dates: start: 20070109, end: 20070110
  2. UNASYN [Concomitant]
     Route: 042
  3. MUCODYNE [Concomitant]
     Route: 048
     Dates: start: 20070109, end: 20070112
  4. MUCOSOLVAN [Concomitant]
     Route: 048
     Dates: start: 20070109, end: 20070112
  5. RENIVACE [Concomitant]
     Route: 048
     Dates: start: 20070109, end: 20070112
  6. FLUITRAN [Concomitant]
     Route: 048
     Dates: start: 20070109, end: 20070112
  7. GASTER [Concomitant]
     Route: 048
     Dates: start: 20070109, end: 20070112

REACTIONS (2)
  - DIARRHOEA [None]
  - PNEUMONIA [None]
